FAERS Safety Report 7658560-3 (Version None)
Quarter: 2011Q3

REPORT INFORMATION
  Report Type: 
  Country: None (occurrence: None)
  Receive Date: 20110804
  Receipt Date: 20110804
  Transmission Date: 20111222
  Serious: No
  Sender: FDA-Public Use
  Company Number: None

PATIENT
  Age: 49 Year
  Sex: Male

DRUGS (1)
  1. FINGOLIMOD 0.5MG DAILY NOVARTIS [Suspect]
     Indication: MULTIPLE SCLEROSIS
     Dosage: 0.5MG DAILY ORAL
     Route: 048
     Dates: start: 20110201

REACTIONS (1)
  - APNOEA [None]
